FAERS Safety Report 8447457-7 (Version None)
Quarter: 2012Q2

REPORT INFORMATION
  Report Type: 
  Country: None (occurrence: None)
  Receive Date: 20120619
  Receipt Date: 20120614
  Transmission Date: 20120825
  Serious: Yes (Hospitalization)
  Sender: FDA-Public Use
  Company Number: FR-AMGEN-FRANI2012022349

PATIENT
  Age: 71 Year
  Sex: Male
  Weight: 70 kg

DRUGS (9)
  1. PANITUMUMAB [Suspect]
     Indication: TRANSITIONAL CELL CARCINOMA
     Dosage: 475 MG, UNK
     Dates: start: 20111129
  2. METHOTREXATE [Concomitant]
     Dosage: 58 MG, UNK
     Route: 042
     Dates: start: 20111128
  3. PRIMPERAN TAB [Concomitant]
     Dosage: UNK
     Route: 048
     Dates: start: 20111128
  4. FUCIDINE CAP [Concomitant]
     Dosage: UNK
     Dates: start: 20111212
  5. CISPLATIN [Concomitant]
     Dosage: 134 MG, UNK
     Route: 042
     Dates: start: 20111129
  6. EMEND [Concomitant]
     Dosage: UNK
     Route: 048
     Dates: start: 20111201
  7. DOXORUBICIN HCL [Concomitant]
     Dosage: 58 MG, UNK
     Route: 042
     Dates: start: 20111129
  8. KYTRIL [Concomitant]
     Dosage: UNK
     Route: 048
     Dates: start: 20111130
  9. VINBLASTINE SULFATE [Concomitant]
     Dosage: 5.8 MG, UNK
     Route: 042
     Dates: start: 20111129

REACTIONS (2)
  - THROMBOCYTOPENIA [None]
  - ANAEMIA [None]
